FAERS Safety Report 20603291 (Version 1)
Quarter: 2022Q1

REPORT INFORMATION
  Report Type: Report from Study
  Country: ES (occurrence: ES)
  Receive Date: 20220316
  Receipt Date: 20220316
  Transmission Date: 20220423
  Serious: Yes (Death, Other)
  Sender: FDA-Public Use
  Company Number: ES-AMGEN-ESPNI2022046056

PATIENT
  Age: 69 Year

DRUGS (1)
  1. AMG-510 [Suspect]
     Active Substance: AMG-510
     Indication: Product used for unknown indication
     Dosage: UNK
     Route: 065
     Dates: start: 20210410, end: 20210603

REACTIONS (1)
  - Non-small cell lung cancer [Fatal]
